FAERS Safety Report 4318748-6 (Version None)
Quarter: 2004Q1

REPORT INFORMATION
  Report Type: 
  Country: None (occurrence: None)
  Receive Date: 20040315
  Receipt Date: 20040308
  Transmission Date: 20041129
  Serious: Yes (Other)
  Sender: FDA-Public Use
  Company Number: 2004202364US

PATIENT
  Age: 51 Year
  Sex: Female

DRUGS (3)
  1. PROVERA [Suspect]
     Indication: MENOPAUSAL SYMPTOMS
     Dosage: ORAL
     Route: 048
     Dates: start: 19890101, end: 19950801
  2. PREMARIN [Suspect]
     Indication: MENOPAUSAL SYMPTOMS
     Dosage: ORAL
     Route: 048
     Dates: start: 19890101, end: 19950801
  3. PREMPRO [Suspect]
     Dosage: ORAL
     Route: 048
     Dates: start: 19950801, end: 20010701

REACTIONS (4)
  - ANXIETY [None]
  - BREAST CANCER [None]
  - MARITAL PROBLEM [None]
  - PAIN [None]
